FAERS Safety Report 7287629-0 (Version None)
Quarter: 2011Q1

REPORT INFORMATION
  Report Type: 
  Country: None (occurrence: None)
  Receive Date: 20110211
  Receipt Date: 20110202
  Transmission Date: 20110831
  Serious: Yes (Hospitalization)
  Sender: FDA-Public Use
  Company Number: FR-EISAI INC-E3810-04445-SPO-FR

PATIENT
  Sex: Female

DRUGS (10)
  1. CACIT D3 [Concomitant]
  2. SIFROL [Concomitant]
  3. OLMETEC [Suspect]
     Indication: ILL-DEFINED DISORDER
     Route: 048
  4. ZANIDIP [Suspect]
     Indication: HYPERTENSION
     Route: 048
  5. DIFFU K [Concomitant]
     Route: 048
  6. TANAKAN [Suspect]
     Indication: ILL-DEFINED DISORDER
     Route: 048
  7. STILNOX [Suspect]
     Indication: INSOMNIA
     Route: 048
  8. PARIET (RABEPRAZOLE) [Suspect]
     Route: 048
     Dates: end: 20110112
  9. ALDALIX [Suspect]
     Indication: HYPERTENSION
     Dosage: UNKNOWN
     Route: 048
  10. ASPIRIN [Concomitant]

REACTIONS (3)
  - NAUSEA [None]
  - VOMITING [None]
  - HYPONATRAEMIA [None]
